FAERS Safety Report 6765557-4 (Version None)
Quarter: 2010Q2

REPORT INFORMATION
  Report Type: 
  Country: None (occurrence: None)
  Receive Date: 20100611
  Receipt Date: 20100528
  Transmission Date: 20101027
  Serious: Yes (Other)
  Sender: FDA-Public Use
  Company Number: PHHY2010FR35256

PATIENT
  Sex: Female

DRUGS (9)
  1. RASILEZ [Suspect]
     Indication: HYPERTENSION
     Dosage: 150 MG
     Dates: start: 20100303, end: 20100501
  2. ISOPTIN [Concomitant]
     Dosage: 240 MG
  3. RILMENIDINE [Concomitant]
  4. TENSTATEN [Concomitant]
     Dosage: 2 DF DAILY
  5. LEVOTHYROXINE SODIUM [Concomitant]
     Dosage: 100 MG
  6. PRAXILENE [Concomitant]
  7. TAHOR [Concomitant]
  8. LEXOMIL [Concomitant]
  9. FUROSEMIDE [Concomitant]

REACTIONS (7)
  - ANGIOEDEMA [None]
  - CREPITATIONS [None]
  - DYSPNOEA EXERTIONAL [None]
  - FACE OEDEMA [None]
  - FATIGUE [None]
  - OEDEMA PERIPHERAL [None]
  - RAYNAUD'S PHENOMENON [None]
